FAERS Safety Report 8518481-0 (Version None)
Quarter: 2012Q3

REPORT INFORMATION
  Report Type: 
  Country: None (occurrence: None)
  Receive Date: 20120718
  Receipt Date: 20120406
  Transmission Date: 20120928
  Serious: No
  Sender: FDA-Public Use
  Company Number: US-BRISTOL-MYERS SQUIBB COMPANY-16507188

PATIENT
  Age: 79 Year
  Sex: Male
  Weight: 72 kg

DRUGS (6)
  1. ATENOLOL [Concomitant]
  2. EFFEXOR [Concomitant]
  3. COUMADIN [Suspect]
     Dates: start: 20120405
  4. XANAX [Concomitant]
  5. FISH OIL [Concomitant]
  6. VITAMIN TAB [Concomitant]

REACTIONS (1)
  - INTERNATIONAL NORMALISED RATIO DECREASED [None]
